FAERS Safety Report 9160352 (Version 1)
Quarter: 2013Q1

REPORT INFORMATION
  Report Type: Spontaneous
  Country: BE (occurrence: BE)
  Receive Date: 20130313
  Receipt Date: 20130313
  Transmission Date: 20140127
  Serious: Yes (Other)
  Sender: FDA-Public Use
  Company Number: BE-BAYER-2013-030150

PATIENT
  Age: 70 Year
  Sex: Male

DRUGS (4)
  1. PROFLOX [Suspect]
     Indication: LOWER RESPIRATORY TRACT INFECTION
     Dosage: 400 MG, UNK
     Route: 048
     Dates: start: 201303
  2. AMLODIPINE [Concomitant]
     Dosage: UNK
  3. CRESTOR [Concomitant]
     Dosage: UNK
  4. ASAFLOW [Concomitant]

REACTIONS (1)
  - Diarrhoea haemorrhagic [Recovered/Resolved]
